FAERS Safety Report 16951235 (Version 1)
Quarter: 2019Q4

REPORT INFORMATION
  Report Type: Spontaneous
  Country: CA (occurrence: CA)
  Receive Date: 20191023
  Receipt Date: 20191023
  Transmission Date: 20200122
  Serious: Yes (Hospitalization, Other)
  Sender: FDA-Public Use
  Company Number: CA-PFIZER INC-2019453253

PATIENT
  Age: 24 Year
  Sex: Female

DRUGS (5)
  1. DILAUDID [Suspect]
     Active Substance: HYDROMORPHONE HYDROCHLORIDE
     Dosage: 120 MG, UNK
     Route: 042
  2. NICOTINE. [Suspect]
     Active Substance: NICOTINE
     Dosage: UNK
     Route: 065
  3. HYDROMORPH CONTIN [Suspect]
     Active Substance: HYDROMORPHONE
     Dosage: 120 MG, UNK
     Route: 042
  4. DIAZEPAM. [Suspect]
     Active Substance: DIAZEPAM
     Dosage: UNK
     Route: 065
  5. ALCOHOL. [Suspect]
     Active Substance: ALCOHOL
     Dosage: UNK
     Route: 065

REACTIONS (6)
  - Disinhibition [Unknown]
  - Drug withdrawal syndrome [Unknown]
  - Overdose [Unknown]
  - Drug abuse [Unknown]
  - Drug dependence [Unknown]
  - Judgement impaired [Unknown]
